FAERS Safety Report 19377448 (Version 2)
Quarter: 2021Q3

REPORT INFORMATION
  Report Type: Report from Study
  Country: US (occurrence: US)
  Receive Date: 20210604
  Receipt Date: 20210707
  Transmission Date: 20211014
  Serious: Yes (Hospitalization, Other)
  Sender: FDA-Public Use
  Company Number: NVSC2021US120453

PATIENT
  Sex: Female

DRUGS (2)
  1. TABRECTA [Suspect]
     Active Substance: CAPMATINIB
     Indication: LUNG NEOPLASM MALIGNANT
     Dosage: 400 MG, BID (ORAL?VIA MOUTH)
     Route: 048
     Dates: start: 202105, end: 20210524
  2. TABRECTA [Suspect]
     Active Substance: CAPMATINIB
     Indication: LUNG NEOPLASM MALIGNANT

REACTIONS (2)
  - Pneumonia [Not Recovered/Not Resolved]
  - Pneumonitis [Recovering/Resolving]
